FAERS Safety Report 12513996 (Version 2)
Quarter: 2016Q3

REPORT INFORMATION
  Report Type: Spontaneous
  Country: US (occurrence: US)
  Receive Date: 20160630
  Receipt Date: 20160713
  Transmission Date: 20161109
  Serious: Yes (Hospitalization)
  Sender: FDA-Public Use
  Company Number: US-JNJFOC-20160527985

PATIENT
  Age: 66 Year
  Sex: Male

DRUGS (2)
  1. XARELTO [Suspect]
     Active Substance: RIVAROXABAN
     Indication: ANTICOAGULANT THERAPY
     Dosage: 15 MG / 20 MG
     Route: 048
     Dates: start: 20130124, end: 201403
  2. XARELTO [Suspect]
     Active Substance: RIVAROXABAN
     Indication: PULMONARY EMBOLISM
     Dosage: 15 MG / 20 MG
     Route: 048
     Dates: start: 20130124, end: 201403

REACTIONS (2)
  - Urinary retention [Recovering/Resolving]
  - Haematuria [Recovering/Resolving]

NARRATIVE: CASE EVENT DATE: 201402
